FAERS Safety Report 15917365 (Version 1)
Quarter: 2019Q1

REPORT INFORMATION
  Report Type: Spontaneous
  Country: US (occurrence: US)
  Receive Date: 20190205
  Receipt Date: 20190205
  Transmission Date: 20190417
  Serious: No
  Sender: FDA-Public Use
  Company Number: US-DRREDDYS-USA/USA/19/0107203

PATIENT
  Age: 69 Year
  Sex: Male
  Weight: 77.3 kg

DRUGS (1)
  1. OMEPRAZOLE DELAYED RELEASE CAPSULES 40 MG [Suspect]
     Active Substance: OMEPRAZOLE
     Indication: GASTROOESOPHAGEAL REFLUX DISEASE
     Route: 048

REACTIONS (2)
  - Drug ineffective [Not Recovered/Not Resolved]
  - Product quality issue [Unknown]
